FAERS Safety Report 12632885 (Version 2)
Quarter: 2016Q3

REPORT INFORMATION
  Report Type: Spontaneous
  Country: US (occurrence: US)
  Receive Date: 20160808
  Receipt Date: 20160808
  Transmission Date: 20161109
  Serious: No
  Sender: FDA-Public Use
  Company Number: US-BEH-2015057372

PATIENT
  Sex: Female
  Weight: 63 kg

DRUGS (8)
  1. DIPHENHYDRAMINE. [Concomitant]
     Active Substance: DIPHENHYDRAMINE
  2. DOVONEX [Concomitant]
     Active Substance: CALCIPOTRIENE
  3. ACETAMINOPHEN. [Concomitant]
     Active Substance: ACETAMINOPHEN
  4. EPIPEN [Concomitant]
     Active Substance: EPINEPHRINE
  5. ATENOLOL. [Concomitant]
     Active Substance: ATENOLOL
  6. HIZENTRA [Suspect]
     Active Substance: HUMAN IMMUNOGLOBULIN G
     Indication: IMMUNODEFICIENCY COMMON VARIABLE
     Route: 058
  7. MYCAMINE [Concomitant]
     Active Substance: MICAFUNGIN SODIUM
  8. LMX [Concomitant]
     Active Substance: LIDOCAINE

REACTIONS (1)
  - Ear infection [Unknown]
